FAERS Safety Report 22093713 (Version 2)
Quarter: 2023Q1

REPORT INFORMATION
  Report Type: Spontaneous
  Country: US (occurrence: US)
  Receive Date: 20230314
  Receipt Date: 20230323
  Transmission Date: 20230418
  Serious: No
  Sender: FDA-Public Use
  Company Number: US-Calliditas-2023CAL00229

PATIENT
  Age: 84 Year
  Sex: Male

DRUGS (13)
  1. TARPEYO [Suspect]
     Active Substance: BUDESONIDE
     Indication: IgA nephropathy
     Dosage: 16 MG (4 MG CAPSULES) DAILY
     Route: 048
     Dates: start: 20230223
  2. ALLOPURINOL [Concomitant]
     Active Substance: ALLOPURINOL
  3. AMLODIPINE [Concomitant]
     Active Substance: AMLODIPINE BESYLATE
  4. COENZYME Q10 [Concomitant]
     Active Substance: DIETARY SUPPLEMENT\UBIDECARENONE
  5. VITAMIN B12 [Concomitant]
     Active Substance: CYANOCOBALAMIN
  6. FERROUS SULFATE [Concomitant]
     Active Substance: FERROUS SULFATE
  7. VITAMINS [Concomitant]
     Active Substance: VITAMINS
  8. FISH OIL [Concomitant]
     Active Substance: FISH OIL
     Dosage: 4 CAPSULES A DAY
  9. SAW PALMETTO EXTRACT [Concomitant]
     Dosage: (FOR PROSTATE)
  10. SODIUM BICARBONATE [Concomitant]
     Active Substance: SODIUM BICARBONATE
     Dosage: 2 IN THE MORNING AND 2 AT NIGHT
  11. FLOMAX [Concomitant]
     Active Substance: TAMSULOSIN HYDROCHLORIDE
     Dosage: 1 IN THE MORNING AND 1 AT NIGHT
  12. ASCORBIC ACID [Concomitant]
     Active Substance: ASCORBIC ACID
     Dosage: ^HALF IN THE MORNING AND HALF AT NIGHT^
  13. ZINC [Concomitant]
     Active Substance: ZINC

REACTIONS (6)
  - Fluid retention [Recovering/Resolving]
  - Hypertension [Recovering/Resolving]
  - Blood pressure fluctuation [Recovering/Resolving]
  - Weight increased [Recovering/Resolving]
  - Insomnia [Recovering/Resolving]
  - Peripheral swelling [Recovering/Resolving]

NARRATIVE: CASE EVENT DATE: 20230301
